FAERS Safety Report 20379296 (Version 7)
Quarter: 2022Q3

REPORT INFORMATION
  Report Type: Report from Study
  Country: CN (occurrence: CN)
  Receive Date: 20220126
  Receipt Date: 20220824
  Transmission Date: 20221027
  Serious: Yes (Hospitalization)
  Sender: FDA-Public Use
  Company Number: CN-PFIZER INC-202200123813

PATIENT
  Age: 50 Year
  Sex: Female
  Weight: 77.1 kg

DRUGS (6)
  1. CYTARABINE [Suspect]
     Active Substance: CYTARABINE
     Indication: Acute myeloid leukaemia
     Dosage: 1800 MG, 1X/DAY
     Route: 041
     Dates: start: 20220106, end: 20220110
  2. INVESTIGATIONAL PRODUCT [Suspect]
     Active Substance: INVESTIGATIONAL PRODUCT
     Indication: Acute myeloid leukaemia
     Dosage: UNK
     Dates: start: 20220105, end: 20220105
  3. INVESTIGATIONAL PRODUCT [Suspect]
     Active Substance: INVESTIGATIONAL PRODUCT
     Dosage: UNK
     Dates: start: 20220106, end: 20220110
  4. INVESTIGATIONAL PRODUCT [Suspect]
     Active Substance: INVESTIGATIONAL PRODUCT
     Dosage: UNK
     Dates: start: 20220111, end: 20220112
  5. MITOXANTRONE [Suspect]
     Active Substance: MITOXANTRONE HYDROCHLORIDE
     Indication: Acute myeloid leukaemia
     Dosage: 10.8 MG, 1X/DAY, 25/12.5 MILLIGRAM PER MILLILITRE
     Route: 041
     Dates: start: 20220106, end: 20220110
  6. ETOPOSIDE [Suspect]
     Active Substance: ETOPOSIDE
     Indication: Acute myeloid leukaemia
     Dosage: 180 MG, 1X/DAY, 0.1/5 GRAM PER MILLILITRE
     Route: 041
     Dates: start: 20220106, end: 20220108

REACTIONS (1)
  - Haemorrhage intracranial [Recovered/Resolved]

NARRATIVE: CASE EVENT DATE: 20220114
